FAERS Safety Report 4816937-5 (Version None)
Quarter: 2005Q4

REPORT INFORMATION
  Report Type: 
  Country: None (occurrence: None)
  Receive Date: 20051101
  Receipt Date: 20050802
  Transmission Date: 20060501
  Serious: Yes (Hospitalization)
  Sender: FDA-Public Use
  Company Number: US-MERCK-0508USA01125

PATIENT
  Age: 60 Year
  Sex: Male
  Weight: 83 kg

DRUGS (5)
  1. VIOXX [Suspect]
     Indication: FIBROMYALGIA
     Route: 048
     Dates: start: 20010601, end: 20040930
  2. VIOXX [Suspect]
     Route: 048
     Dates: start: 20010601, end: 20040930
  3. VIOXX [Suspect]
     Indication: RHEUMATOID ARTHRITIS
     Route: 048
     Dates: start: 20010601, end: 20040930
  4. VIOXX [Suspect]
     Route: 048
     Dates: start: 20010601, end: 20040930
  5. ZOCOR [Concomitant]
     Route: 065

REACTIONS (2)
  - CLUSTER HEADACHE [None]
  - MYOCARDIAL INFARCTION [None]
